FAERS Safety Report 9229055 (Version 1)
Quarter: 2013Q2

REPORT INFORMATION
  Report Type: Report from Study
  Country: IT (occurrence: IT)
  Receive Date: 20130412
  Receipt Date: 20130412
  Transmission Date: 20140414
  Serious: Yes (Death)
  Sender: FDA-Public Use
  Company Number: IT-009507513-1304ITA003869

PATIENT
  Age: 10 Year
  Sex: Female

DRUGS (4)
  1. TEMODAL [Suspect]
     Indication: GLIOMATOSIS CEREBRI
     Route: 048
  2. CARBOPLATIN [Suspect]
     Indication: GLIOMATOSIS CEREBRI
  3. VINCRISTINE SULFATE [Suspect]
     Indication: GLIOMATOSIS CEREBRI
  4. THERAPEUTIC RADIOPHARMACEUTICAL (UNSPECIFIED) [Concomitant]
     Indication: GLIOMATOSIS CEREBRI

REACTIONS (2)
  - Death [Fatal]
  - Drug ineffective [Unknown]
